FAERS Safety Report 6290865-3 (Version None)
Quarter: 2009Q3

REPORT INFORMATION
  Report Type: 
  Country: None (occurrence: None)
  Receive Date: 20090729
  Receipt Date: 20090729
  Transmission Date: 20100115
  Serious: No
  Sender: FDA-Public Use
  Company Number: None

PATIENT
  Sex: Male
  Weight: 90.7194 kg

DRUGS (1)
  1. TRILIPIX [Suspect]
     Indication: BLOOD CHOLESTEROL ABNORMAL
     Dosage: 135 MG, ONCE DAILY, PO
     Route: 048
     Dates: start: 20090724, end: 20090727

REACTIONS (5)
  - ABDOMINAL PAIN [None]
  - DYSURIA [None]
  - MALAISE [None]
  - PROCTITIS [None]
  - SCAR PAIN [None]
